FAERS Safety Report 21902960 (Version 2)
Quarter: 2024Q1

REPORT INFORMATION
  Report Type: Spontaneous
  Country: US (occurrence: US)
  Receive Date: 20230124
  Receipt Date: 20240212
  Transmission Date: 20240410
  Serious: No
  Sender: FDA-Public Use
  Company Number: US-MYLANLABS-2023M1004582

PATIENT
  Sex: Female
  Weight: 61.23 kg

DRUGS (1)
  1. ESTRADIOL [Suspect]
     Active Substance: ESTRADIOL
     Indication: Urinary tract infection
     Dosage: 0.01 PERCENT, 3XW (3 TIMES A WEEK)
     Route: 067

REACTIONS (5)
  - Urinary tract infection [Recovered/Resolved]
  - Condition aggravated [Recovered/Resolved]
  - Wrong technique in product usage process [Unknown]
  - Device use issue [Unknown]
  - Off label use [Unknown]
